FAERS Safety Report 9529615 (Version 1)
Quarter: 2013Q2

REPORT INFORMATION
  Report Type: Spontaneous
  Country: US (occurrence: None)
  Receive Date: 20130402
  Receipt Date: 20130402
  Transmission Date: 20140414
  Serious: Yes (Hospitalization, Other)
  Sender: FDA-Public Use
  Company Number: RB-49646-2013

PATIENT
  Sex: Female

DRUGS (2)
  1. SUBUTEX [Suspect]
     Indication: PAIN
     Route: 064
     Dates: start: 201204, end: 20121221
  2. SUBOXONE [Suspect]
     Indication: PAIN
     Dosage: 8 MG SUBOXONE FILM TRANSPLACENTAL
     Route: 064
     Dates: start: 201204, end: 20120628

REACTIONS (2)
  - Foetal exposure during pregnancy [None]
  - Drug withdrawal syndrome neonatal [None]
